FAERS Safety Report 13095027 (Version 2)
Quarter: 2017Q1

REPORT INFORMATION
  Report Type: Report from Study
  Country: JP (occurrence: JP)
  Receive Date: 20170106
  Receipt Date: 20170213
  Transmission Date: 20170428
  Serious: No
  Sender: FDA-Public Use
  Company Number: JP-AMGEN-JPNCT2016145376

PATIENT
  Sex: Female
  Weight: 59 kg

DRUGS (20)
  1. OXALIPLATIN. [Concomitant]
     Active Substance: OXALIPLATIN
     Dosage: 130 MG, Q2WEEKS
     Route: 041
     Dates: start: 20161019, end: 20161130
  2. OXALIPLATIN. [Concomitant]
     Active Substance: OXALIPLATIN
     Dosage: 130 MG, Q2WEEKS
     Route: 041
     Dates: start: 20160824, end: 20160921
  3. 5-FU [Concomitant]
     Active Substance: FLUOROURACIL
     Dosage: 630 MG, Q2WK
     Route: 040
     Dates: start: 20161102, end: 20161130
  4. PANITUMUMAB [Suspect]
     Active Substance: PANITUMUMAB
     Dosage: 350 MG, Q2WK
     Route: 041
     Dates: start: 20160824, end: 20160921
  5. PANITUMUMAB [Suspect]
     Active Substance: PANITUMUMAB
     Dosage: 350 MG, Q2WK
     Route: 041
     Dates: start: 20161228
  6. 5-FU [Concomitant]
     Active Substance: FLUOROURACIL
     Dosage: 630 MG, Q2WEEKS
     Route: 040
     Dates: start: 20160824, end: 20160921
  7. 5-FU [Concomitant]
     Active Substance: FLUOROURACIL
     Dosage: 3800 MG, Q2WEEKS
     Route: 041
     Dates: start: 20161102, end: 20161130
  8. 5-FU [Concomitant]
     Active Substance: FLUOROURACIL
     Dosage: 3800 MG, Q2WEEKS
     Route: 041
     Dates: start: 20161228
  9. OXALIPLATIN. [Concomitant]
     Active Substance: OXALIPLATIN
     Indication: COLON CANCER
     Dosage: 130 MG, Q2WEEKS
     Route: 041
     Dates: start: 20160629, end: 20160727
  10. CALCIUM LEVOFOLINATE [Concomitant]
     Active Substance: LEVOLEUCOVORIN CALCIUM
     Dosage: 320 MG, Q2WEEKS
     Route: 041
     Dates: start: 20161228
  11. PANITUMUMAB [Suspect]
     Active Substance: PANITUMUMAB
     Indication: COLON CANCER
     Dosage: 350 MG, Q2WK
     Route: 041
     Dates: start: 20160629, end: 20160727
  12. CALCIUM LEVOFOLINATE [Concomitant]
     Active Substance: LEVOLEUCOVORIN CALCIUM
     Dosage: 320 MG, Q2WEEKS
     Route: 041
     Dates: start: 20160824, end: 20160921
  13. 5-FU [Concomitant]
     Active Substance: FLUOROURACIL
     Dosage: 630 MG, Q2WK
     Route: 040
     Dates: start: 20161228
  14. PANITUMUMAB [Suspect]
     Active Substance: PANITUMUMAB
     Dosage: 350 MG, Q2WK
     Route: 041
     Dates: start: 20161019, end: 20161130
  15. OXALIPLATIN. [Concomitant]
     Active Substance: OXALIPLATIN
     Dosage: 130 MG, Q2WEEKS
     Route: 041
     Dates: start: 20161228
  16. CALCIUM LEVOFOLINATE [Concomitant]
     Active Substance: LEVOLEUCOVORIN CALCIUM
     Indication: COLON CANCER
     Dosage: 320 MG, Q2WEEKS
     Route: 041
     Dates: start: 20160629, end: 20160727
  17. CALCIUM LEVOFOLINATE [Concomitant]
     Active Substance: LEVOLEUCOVORIN CALCIUM
     Dosage: 320 MG, Q2WEEKS
     Route: 041
     Dates: start: 20161019, end: 20161130
  18. 5-FU [Concomitant]
     Active Substance: FLUOROURACIL
     Indication: COLON CANCER
     Dosage: 630 MG, Q2WK
     Route: 040
     Dates: start: 20160629, end: 20160727
  19. 5-FU [Concomitant]
     Active Substance: FLUOROURACIL
     Dosage: 3800 MG, Q2WEEKS
     Route: 041
     Dates: start: 20160629, end: 20160727
  20. 5-FU [Concomitant]
     Active Substance: FLUOROURACIL
     Dosage: 3800 MG, Q2WEEKS
     Route: 041
     Dates: start: 20160824, end: 20160921

REACTIONS (9)
  - Skin hyperpigmentation [Unknown]
  - Hypersensitivity [Recovered/Resolved]
  - Fatigue [Recovered/Resolved]
  - Dermatitis acneiform [Unknown]
  - Dry skin [Recovered/Resolved]
  - Paronychia [Recovered/Resolved]
  - Platelet count decreased [Unknown]
  - White blood cell count decreased [Unknown]
  - Neutrophil count decreased [Unknown]
